FAERS Safety Report 16732076 (Version 2)
Quarter: 2019Q4

REPORT INFORMATION
  Report Type: Report from Study
  Country: JP (occurrence: JP)
  Receive Date: 20190822
  Receipt Date: 20191007
  Transmission Date: 20200122
  Serious: Yes (Death, Hospitalization)
  Sender: FDA-Public Use
  Company Number: JP-EISAI MEDICAL RESEARCH-EC-2019-055284

PATIENT
  Age: 69 Year
  Sex: Female
  Weight: 46 kg

DRUGS (5)
  1. AMLODIPINE [Concomitant]
     Active Substance: AMLODIPINE BESYLATE
  2. LENVIMA [Suspect]
     Active Substance: LENVATINIB
     Indication: HEPATOCELLULAR CARCINOMA
     Route: 048
     Dates: start: 20181105, end: 20181225
  3. LIXIANA [Suspect]
     Active Substance: EDOXABAN TOSYLATE
     Indication: PORTAL VEIN THROMBOSIS
     Dosage: DOSE AND FREQUENCY UNKNOWN
     Route: 065
  4. DECADRON [Concomitant]
     Active Substance: DEXAMETHASONE
  5. HERBAL NOS [Concomitant]
     Active Substance: HERBALS

REACTIONS (2)
  - Upper gastrointestinal haemorrhage [Recovered/Resolved]
  - Malignant neoplasm progression [Fatal]

NARRATIVE: CASE EVENT DATE: 20181225
